FAERS Safety Report 8063546-3 (Version None)
Quarter: 2012Q1

REPORT INFORMATION
  Report Type: 
  Country: None (occurrence: None)
  Receive Date: 20120123
  Receipt Date: 20120111
  Transmission Date: 20120608
  Serious: Yes (Other)
  Sender: FDA-Public Use
  Company Number: DE-BRISTOL-MYERS SQUIBB COMPANY-16342610

PATIENT
  Age: 44 Year
  Sex: Female
  Weight: 73 kg

DRUGS (4)
  1. METHADONE HCL [Suspect]
     Indication: DRUG DEPENDENCE
     Dosage: D-L-METHADONE
     Route: 048
     Dates: start: 20081001
  2. NORVIR [Suspect]
     Indication: ACQUIRED IMMUNODEFICIENCY SYNDROME
     Dosage: 1*1 1PER 1 FREQ NOT CLEARLY MENTIONED
     Route: 048
     Dates: start: 20100101
  3. ABACAVIR SULFATE AND LAMIVUDINE [Suspect]
     Indication: ACQUIRED IMMUNODEFICIENCY SYNDROME
     Dosage: 1*1 1PER 1 FREQ NOT CLEARLY MENTIONED
     Route: 048
     Dates: start: 20100101
  4. REYATAZ [Suspect]
     Indication: ACQUIRED IMMUNODEFICIENCY SYNDROME
     Dosage: 1*1 1PER 1 FREQ NOT CLEARLY MENTIONED
     Route: 048
     Dates: start: 20100101

REACTIONS (1)
  - HYPOTHYROIDISM [None]
